FAERS Safety Report 4289103-2 (Version None)
Quarter: 2004Q1

REPORT INFORMATION
  Report Type: 
  Country: None (occurrence: None)
  Receive Date: 20040126
  Receipt Date: 20030910
  Transmission Date: 20041129
  Serious: No
  Sender: FDA-Public Use
  Company Number: USA030432984

PATIENT
  Age: 74 Year
  Sex: Female
  Weight: 91 kg

DRUGS (8)
  1. FORTEO [Suspect]
     Indication: OSTEOPOROSIS
     Dosage: 20 UG/DAY
     Dates: start: 20030227
  2. COZAAR [Concomitant]
  3. FERROUS SULFATE TAB [Concomitant]
  4. INSULIN [Concomitant]
  5. LASIX [Concomitant]
  6. NEXIUM [Concomitant]
  7. PREDNISONE [Concomitant]
  8. REMICADE [Concomitant]

REACTIONS (4)
  - DYSPNOEA [None]
  - PRURITUS [None]
  - RASH PRURITIC [None]
  - SKIN DISCOLOURATION [None]
